FAERS Safety Report 8837981 (Version 2)
Quarter: 2013Q1

REPORT INFORMATION
  Report Type: Other
  Country: DK (occurrence: DK)
  Receive Date: 20121012
  Receipt Date: 20130103
  Transmission Date: 20140127
  Serious: Yes (Other)
  Sender: FDA-Public Use
  Company Number: DK-WATSON-2012-17145

PATIENT
  Age: 19 Year
  Sex: Female
  Weight: 42 kg

DRUGS (3)
  1. MIRTAZAPINE (UNKNOWN) [Suspect]
     Indication: MENTAL DISORDER
     Dosage: 45 MG, DAILY
     Route: 048
     Dates: start: 201109
  2. SERTRALIN                          /01011401/ [Concomitant]
     Indication: OBSESSIVE-COMPULSIVE DISORDER
     Dosage: 200 MG, DAILY
     Route: 048
     Dates: start: 2009
  3. RISPERIDONE SANDOZ [Suspect]
     Indication: MENTAL DISORDER
     Dosage: 1 MG, DAILY
     Route: 048
     Dates: start: 201112

REACTIONS (6)
  - Hypotension [Not Recovered/Not Resolved]
  - Syncope [Not Recovered/Not Resolved]
  - Arrhythmia [Not Recovered/Not Resolved]
  - Heart rate decreased [Not Recovered/Not Resolved]
  - Speech disorder [Not Recovered/Not Resolved]
  - Swollen tongue [Not Recovered/Not Resolved]
